FAERS Safety Report 18176650 (Version 1)
Quarter: 2020Q3

REPORT INFORMATION
  Report Type: Spontaneous
  Country: DE (occurrence: DE)
  Receive Date: 20200820
  Receipt Date: 20200820
  Transmission Date: 20201103
  Serious: Yes (Hospitalization)
  Sender: FDA-Public Use
  Company Number: DE-TEVA-2020-DE-1815676

PATIENT
  Age: 67 Year
  Sex: Male
  Weight: 63 kg

DRUGS (12)
  1. COLECALCIFEROL (VITAMIN D) [Concomitant]
     Dosage: 1000 IE
     Dates: start: 20200429
  2. PREDNISOLON [Suspect]
     Active Substance: PREDNISOLONE
     Dosage: 5 MG, TAPERED OFF
     Route: 065
  3. CLOPIDOGREL [Suspect]
     Active Substance: CLOPIDOGREL BISULFATE
     Dosage: 75 MILLIGRAM DAILY;  0?1?0?0
  4. CALCIUM [Concomitant]
     Active Substance: CALCIUM
     Dosage: 500 MILLIGRAM DAILY; 1?0?0?0
  5. AMLODIPIN [Concomitant]
     Active Substance: AMLODIPINE BESYLATE
     Dosage: 5 MILLIGRAM DAILY; 1?0?0?0
  6. ACETYLSALICYLSAEURE [Concomitant]
     Active Substance: ASPIRIN
     Dosage: 100 MILLIGRAM DAILY; 1?0?0?0
  7. KALIUM VERLA [Concomitant]
     Active Substance: POTASSIUM CITRATE
     Dosage: 1 DOSAGE FORMS DAILY; 1?0?0?0
  8. PANTOPRAZOL [Suspect]
     Active Substance: PANTOPRAZOLE SODIUM
     Dosage: 20 MILLIGRAM DAILY;   1?0?0?0
  9. CARVEDILOL. [Concomitant]
     Active Substance: CARVEDILOL
     Dosage: 12.5 MILLIGRAM DAILY; 1?0?1?0
  10. THIAMIN (VITAMIN B1) [Concomitant]
     Dosage: 200 MILLIGRAM DAILY; 1?0?0?0
  11. METAMIZOL [Concomitant]
     Active Substance: METAMIZOLE SODIUM
     Dosage: 2000 MILLIGRAM DAILY; 1?1?1?1
  12. NALOXON/TILIDIN [Concomitant]
     Dosage: 2 DOSAGE FORMS DAILY; 4|50 MG, 1?0?1?0

REACTIONS (9)
  - Weight decreased [Unknown]
  - Nausea [Unknown]
  - Dehydration [Unknown]
  - Vomiting [Unknown]
  - Diarrhoea [Unknown]
  - Thirst [Unknown]
  - Condition aggravated [Unknown]
  - Abdominal pain [Unknown]
  - General physical health deterioration [Unknown]
